FAERS Safety Report 9270793 (Version 1)
Quarter: 2013Q2

REPORT INFORMATION
  Report Type: Spontaneous
  Country: US (occurrence: US)
  Receive Date: 20130503
  Receipt Date: 20130503
  Transmission Date: 20140414
  Serious: No
  Sender: FDA-Public Use
  Company Number: US-PFIZER INC-2013134854

PATIENT
  Sex: Female

DRUGS (3)
  1. GEODON [Suspect]
     Indication: POST-TRAUMATIC STRESS DISORDER
     Dosage: 80 MG, UNK
     Dates: start: 20051031, end: 2012
  2. GEODON [Suspect]
     Dosage: 60 MG, UNK
     Dates: start: 2012, end: 2013
  3. GEODON [Suspect]
     Dosage: 40 MG, UNK
     Dates: start: 20130311

REACTIONS (12)
  - Withdrawal syndrome [Unknown]
  - Muscle twitching [Unknown]
  - Pollakiuria [Unknown]
  - Thirst [Unknown]
  - Asthenia [Unknown]
  - Constipation [Unknown]
  - Night sweats [Unknown]
  - Pyrexia [Unknown]
  - Rhinorrhoea [Unknown]
  - Cough [Unknown]
  - Wheezing [Unknown]
  - Heart rate increased [Unknown]
